FAERS Safety Report 10367110 (Version 2)
Quarter: 2015Q4

REPORT INFORMATION
  Report Type: Spontaneous
  Country: US (occurrence: US)
  Receive Date: 20140807
  Receipt Date: 20151111
  Transmission Date: 20160304
  Serious: No
  Sender: FDA-Public Use
  Company Number: US-BIOGENIDEC-2014BI074148

PATIENT
  Age: 31 Year
  Sex: Female

DRUGS (2)
  1. TECFIDERA [Suspect]
     Active Substance: DIMETHYL FUMARATE
     Indication: MULTIPLE SCLEROSIS
     Route: 048
     Dates: start: 20140716, end: 20140717
  2. TECFIDERA [Suspect]
     Active Substance: DIMETHYL FUMARATE
     Indication: MULTIPLE SCLEROSIS
     Dates: start: 201403

REACTIONS (10)
  - Intentional product misuse [Not Recovered/Not Resolved]
  - Blood pressure abnormal [Unknown]
  - Palpitations [Recovered/Resolved]
  - Heart rate increased [Recovered/Resolved]
  - Flushing [Recovered/Resolved]
  - Chills [Recovered/Resolved]
  - Candida infection [Not Recovered/Not Resolved]
  - Pruritus [Recovered/Resolved]
  - Energy increased [Unknown]
  - Skin warm [Recovered/Resolved]

NARRATIVE: CASE EVENT DATE: 201403
